FAERS Safety Report 12369146 (Version 6)
Quarter: 2016Q4

REPORT INFORMATION
  Report Type: Spontaneous
  Country: SE (occurrence: SE)
  Receive Date: 20160513
  Receipt Date: 20161010
  Transmission Date: 20170207
  Serious: Yes (Life-Threatening, Hospitalization)
  Sender: FDA-Public Use
  Company Number: SE-ROCHE-1756443

PATIENT
  Age: 27 Year
  Sex: Male

DRUGS (2)
  1. MABTHERA [Suspect]
     Active Substance: RITUXIMAB
     Indication: MULTIPLE SCLEROSIS
     Dosage: ONCE
     Route: 042
     Dates: start: 20160421, end: 20160421
  2. ALVEDON [Concomitant]
     Active Substance: ACETAMINOPHEN
     Dosage: X 4-4/DAY
     Route: 048
     Dates: start: 20160421, end: 20160428

REACTIONS (4)
  - Cholangitis [Not Recovered/Not Resolved]
  - Cholestasis [Not Recovered/Not Resolved]
  - Off label use [Unknown]
  - Fibrosis [Not Recovered/Not Resolved]

NARRATIVE: CASE EVENT DATE: 20160501
